FAERS Safety Report 4433032-8 (Version None)
Quarter: 2004Q3

REPORT INFORMATION
  Report Type: 
  Country: None (occurrence: None)
  Receive Date: 20040721
  Receipt Date: 20030813
  Transmission Date: 20050211
  Serious: Yes (Life-Threatening, Disabling, Other)
  Sender: FDA-Public Use
  Company Number: WAES 0308USA01569

PATIENT
  Age: 76 Year
  Sex: Female
  Weight: 55.7924 kg

DRUGS (5)
  1. VIOXX [Suspect]
     Indication: OSTEOARTHRITIS
     Dosage: 25 MG/DAILY/PO
     Route: 048
     Dates: start: 20030101, end: 20030801
  2. ARAVA [Concomitant]
  3. ELAVIL [Concomitant]
  4. NORVASC [Concomitant]
  5. SYNTHROID [Concomitant]

REACTIONS (1)
  - RENAL FAILURE ACUTE [None]
